FAERS Safety Report 16737770 (Version 2)
Quarter: 2020Q1

REPORT INFORMATION
  Report Type: Spontaneous
  Country: PT (occurrence: PT)
  Receive Date: 20190823
  Receipt Date: 20200207
  Transmission Date: 20200409
  Serious: Yes (Life-Threatening, Hospitalization, Other)
  Sender: FDA-Public Use
  Company Number: PT-VALIDUS PHARMACEUTICALS LLC-PT-2019VAL000428

PATIENT

DRUGS (14)
  1. CHLORDIAZEPOXIDE. [Suspect]
     Active Substance: CHLORDIAZEPOXIDE
     Indication: WEIGHT DECREASED
     Dosage: 20 MG, QD
     Route: 048
     Dates: start: 201708, end: 201804
  2. FUROSEMIDE. [Suspect]
     Active Substance: FUROSEMIDE
     Indication: WEIGHT DECREASED
     Dosage: 80 MG, QD, 40 MG, BID
     Route: 048
     Dates: start: 201708, end: 201804
  3. METFORMIN HYDROCHLORIDE. [Suspect]
     Active Substance: METFORMIN HYDROCHLORIDE
     Indication: WEIGHT DECREASED
     Dosage: 400 MG, QD
     Route: 048
     Dates: start: 201708, end: 201804
  4. PHENOLPHTHALEIN [Suspect]
     Active Substance: PHENOLPHTHALEIN
     Indication: WEIGHT DECREASED
     Dosage: 160 MG, QD
     Route: 048
     Dates: start: 201708, end: 201804
  5. ORLISTAT. [Suspect]
     Active Substance: ORLISTAT
     Indication: WEIGHT DECREASED
     Dosage: 100 MG, QD, 50 MG, BID
     Route: 048
     Dates: start: 201708, end: 201804
  6. CASCARA SAGRADA                    /00143201/ [Suspect]
     Active Substance: FRANGULA PURSHIANA BARK
     Indication: WEIGHT DECREASED
     Dosage: 2 MG, QD
     Route: 048
     Dates: start: 201708, end: 201804
  7. CHLORDIAZEPOXIDE. [Suspect]
     Active Substance: CHLORDIAZEPOXIDE
     Dosage: 10 MG, QD
     Route: 048
     Dates: start: 201708, end: 201804
  8. TOPIRAMATE. [Suspect]
     Active Substance: TOPIRAMATE
     Indication: WEIGHT DECREASED
     Dosage: 20 MG, QD, 10 MG, BID
     Route: 048
  9. SENNA                              /00142201/ [Suspect]
     Active Substance: SENNA LEAF
     Indication: WEIGHT DECREASED
     Dosage: 20 MG, UNK
     Route: 065
  10. CENTELLA ASIATICA [Suspect]
     Active Substance: CENTELLA ASIATICA WHOLE
     Indication: WEIGHT DECREASED
     Dosage: 400 MG, QD
     Route: 048
     Dates: start: 201708, end: 201804
  11. ETHINYLESTRADIOL W/GESTODENE [Suspect]
     Active Substance: ETHINYL ESTRADIOL\GESTODENE
     Indication: CONTRACEPTION
     Dosage: 1 ?G/L, QD
     Route: 048
     Dates: start: 201711, end: 201804
  12. CHROMIUM PICOLINATE [Suspect]
     Active Substance: CHROMIUM PICOLINATE
     Indication: WEIGHT DECREASED
     Dosage: 200 ?G, QD
     Route: 048
     Dates: start: 201708, end: 201804
  13. BUPROPION HYDROCHLORIDE. [Suspect]
     Active Substance: BUPROPION HYDROCHLORIDE
     Indication: WEIGHT DECREASED
     Dosage: 100 MG, BID
     Route: 048
     Dates: start: 201708, end: 201804
  14. FLECAINIDE [Concomitant]
     Active Substance: FLECAINIDE
     Indication: VENTRICULAR EXTRASYSTOLES
     Dosage: UNK

REACTIONS (11)
  - Product use in unapproved indication [Unknown]
  - Off label use [Unknown]
  - Headache [Recovering/Resolving]
  - Intentional product misuse [Unknown]
  - Drug interaction [Unknown]
  - Thalamic infarction [Not Recovered/Not Resolved]
  - Bradyphrenia [Recovering/Resolving]
  - Psychomotor retardation [Unknown]
  - Fatigue [Recovering/Resolving]
  - Cerebral venous thrombosis [Recovering/Resolving]
  - Neurological symptom [Unknown]

NARRATIVE: CASE EVENT DATE: 20180404
